FAERS Safety Report 4615362-X (Version None)
Quarter: 2005Q1

REPORT INFORMATION
  Report Type: 
  Country: None (occurrence: None)
  Receive Date: 20050317
  Receipt Date: 20050315
  Transmission Date: 20050727
  Serious: Yes (Hospitalization)
  Sender: FDA-Public Use
  Company Number: 211811

PATIENT
  Age: 61 Year
  Sex: Female

DRUGS (8)
  1. MABTHERA (RITUXIMAB) CONC FOR SOLUTION FOR INFUSION [Suspect]
     Dosage: INTRAVENOUS
     Route: 042
     Dates: start: 20041130, end: 20041207
  2. FLUDARABINE PHOSPHATE [Suspect]
     Dosage: INTRAVENOUS
     Route: 042
     Dates: start: 20041130, end: 20041210
  3. FOSINOPRIL SODIUM [Concomitant]
     Dates: start: 20041130, end: 20041210
  4. GLUCOPHAGE [Concomitant]
  5. LEVOTHYROXINE SODIUM [Concomitant]
  6. KARDEGIC (ASPIRIN DL-LYSINE) [Concomitant]
  7. ZOCOR [Concomitant]
  8. CYCLOPHOSPHAMIDE [Suspect]
     Dates: start: 20041130, end: 20041210

REACTIONS (1)
  - AGRANULOCYTOSIS [None]
